FAERS Safety Report 20820942 (Version 2)
Quarter: 2022Q2

REPORT INFORMATION
  Report Type: Spontaneous
  Country: US (occurrence: US)
  Receive Date: 20220512
  Receipt Date: 20220628
  Transmission Date: 20220721
  Serious: No
  Sender: FDA-Public Use
  Company Number: US-BAYER-2022A068378

PATIENT
  Age: 72 Year
  Sex: Female

DRUGS (3)
  1. ALEVEX [Suspect]
     Active Substance: CAMPHOR (SYNTHETIC)\MENTHOL
     Indication: Pain
     Route: 061
  2. ALEVEX [Suspect]
     Active Substance: CAMPHOR (SYNTHETIC)\MENTHOL
     Indication: Pain
     Dosage: ROLL THIS 4 TIMES A DAY
     Route: 061
     Dates: start: 20220504, end: 20220511
  3. ALEVE [Suspect]
     Active Substance: NAPROXEN SODIUM
     Indication: Product used for unknown indication
     Route: 048

REACTIONS (1)
  - Drug ineffective [Recovering/Resolving]
